FAERS Safety Report 25728755 (Version 1)
Quarter: 2025Q3

REPORT INFORMATION
  Report Type: Other
  Country: US (occurrence: US)
  Receive Date: 20250826
  Receipt Date: 20250826
  Transmission Date: 20251021
  Serious: Yes (Hospitalization)
  Sender: SERVIER
  Company Number: US-SERVIER-S25012250

PATIENT

DRUGS (4)
  1. CALASPARGASE PEGOL [Suspect]
     Active Substance: CALASPARGASE PEGOL
     Indication: B-cell type acute leukaemia
     Route: 042
  2. DEXAMETHASONE [Suspect]
     Active Substance: DEXAMETHASONE
     Indication: B-cell type acute leukaemia
     Route: 065
  3. THIOGUANINE [Suspect]
     Active Substance: THIOGUANINE
     Indication: B-cell type acute leukaemia
     Route: 065
  4. PROPOFOL [Suspect]
     Active Substance: PROPOFOL
     Indication: Sedative therapy
     Route: 042

REACTIONS (4)
  - Hypertriglyceridaemia [Recovering/Resolving]
  - Respiratory failure [Unknown]
  - Pancreatitis [Unknown]
  - Organising pneumonia [Unknown]
